FAERS Safety Report 9883352 (Version 2)
Quarter: 2014Q1

REPORT INFORMATION
  Report Type: Spontaneous
  Country: BR (occurrence: BR)
  Receive Date: 20140210
  Receipt Date: 20140210
  Transmission Date: 20141002
  Serious: Yes (Death)
  Sender: FDA-Public Use
  Company Number: BR-PFIZER INC-2013304219

PATIENT
  Sex: Male

DRUGS (5)
  1. SUTENT [Suspect]
     Indication: RENAL CANCER
     Dosage: 50MG (ONE CAPSULE), 1X/DAY
     Route: 048
     Dates: start: 20121017, end: 20131014
  2. LOSARTAN [Concomitant]
     Dosage: 50 MG, UNK
  3. CARBAMAZEPINE [Concomitant]
     Dosage: 200 UG, UNK
  4. DECADRON [Concomitant]
     Dosage: 4 MG, UNK
  5. CODEINE [Concomitant]

REACTIONS (8)
  - Death [Fatal]
  - Diarrhoea [Unknown]
  - Anaemia [Unknown]
  - Headache [Unknown]
  - Memory impairment [Unknown]
  - Aphasia [Unknown]
  - Disease progression [Unknown]
  - Renal cancer [Unknown]
